FAERS Safety Report 12109093 (Version 2)
Quarter: 2016Q1

REPORT INFORMATION
  Report Type: Report from Study
  Country: MX (occurrence: MX)
  Receive Date: 20160224
  Receipt Date: 20160322
  Transmission Date: 20160526
  Serious: No
  Sender: FDA-Public Use
  Company Number: PHHY2016MX023607

PATIENT
  Sex: Female
  Weight: 77 kg

DRUGS (2)
  1. CO-DIOVAN [Suspect]
     Active Substance: HYDROCHLOROTHIAZIDE\VALSARTAN
     Indication: HYPERTENSION
     Dosage: 2 DF (160 MG), QD
     Route: 065
  2. CO-DIOVAN [Suspect]
     Active Substance: HYDROCHLOROTHIAZIDE\VALSARTAN
     Dosage: 1 DF DAILY IN THE MORNING (VALSARTAN 160, HYDROCHLOROTHIAZIDE 25, OT) QD
     Route: 048

REACTIONS (3)
  - Pain [Unknown]
  - Bone loss [Recovering/Resolving]
  - Infection [Unknown]
